FAERS Safety Report 4764727-4 (Version None)
Quarter: 2005Q3

REPORT INFORMATION
  Report Type: 
  Country: None (occurrence: None)
  Receive Date: 20050909
  Receipt Date: 20050811
  Transmission Date: 20060218
  Serious: Yes (Hospitalization)
  Sender: FDA-Public Use
  Company Number: PHRM2005FR02279

PATIENT
  Age: 54 Year
  Sex: Female

DRUGS (11)
  1. SANDOSTATIN [Suspect]
     Route: 042
     Dates: start: 20050715, end: 20050720
  2. RED BLOOD CELLS [Concomitant]
  3. BECILAN [Suspect]
     Dosage: 1 G, QD
     Route: 042
     Dates: start: 20050723, end: 20050726
  4. BENERVA [Suspect]
     Dosage: 500 MG, QD
     Route: 042
     Dates: start: 20050723, end: 20050726
  5. OMEPRAZOLE [Suspect]
     Dosage: 40 MG, Q12H
     Route: 042
     Dates: start: 20050723, end: 20050723
  6. OSMOTAN [Concomitant]
  7. PLASMION [Concomitant]
  8. THIAMINE HCL [Concomitant]
     Dosage: 500 MG DAILY
  9. VITAMIN B6 [Concomitant]
     Dosage: 1 G DAILY
  10. BETADINE [Concomitant]
     Route: 061
     Dates: start: 20050724
  11. FUNGIZONE [Concomitant]
     Dates: start: 20050724

REACTIONS (12)
  - ASTHENIA [None]
  - DERMATITIS BULLOUS [None]
  - FACE OEDEMA [None]
  - HAEMOGLOBIN DECREASED [None]
  - INFLAMMATION [None]
  - JAUNDICE [None]
  - MALNUTRITION [None]
  - NIKOLSKY'S SIGN [None]
  - PRURITUS [None]
  - PYREXIA [None]
  - RASH GENERALISED [None]
  - TOXIC SKIN ERUPTION [None]
